FAERS Safety Report 14300031 (Version 1)
Quarter: 2017Q4

REPORT INFORMATION
  Report Type: Spontaneous
  Country: US (occurrence: US)
  Receive Date: 20171219
  Receipt Date: 20171219
  Transmission Date: 20180321
  Serious: Yes (Hospitalization)
  Sender: FDA-Public Use
  Company Number: US-UNICHEM PHARMACEUTICALS (USA) INC-UCM201712-000310

PATIENT
  Sex: Female

DRUGS (1)
  1. LAMOTRIGINE 100 MG TABLETS [Suspect]
     Active Substance: LAMOTRIGINE

REACTIONS (6)
  - Migraine [Unknown]
  - Vomiting [Unknown]
  - Swollen tongue [Unknown]
  - Swelling face [Unknown]
  - Urticaria [Unknown]
  - Headache [Unknown]
